FAERS Safety Report 4855116-2 (Version None)
Quarter: 2005Q4

REPORT INFORMATION
  Report Type: 
  Country: None (occurrence: None)
  Receive Date: 20051125
  Receipt Date: 20050222
  Transmission Date: 20060501
  Serious: Yes (Disabling)
  Sender: FDA-Public Use
  Company Number: US-JNJFOC-20030801309

PATIENT
  Age: 79 Year
  Sex: Female
  Weight: 58.9676 kg

DRUGS (8)
  1. LEVAQUIN [Suspect]
     Indication: BRONCHITIS
     Dosage: 500 MG
     Dates: start: 20030224, end: 20030226
  2. CLARINEX [Concomitant]
  3. PREDNISONE TAB [Concomitant]
  4. ALBUTEROL [Concomitant]
  5. AZMACORT [Concomitant]
  6. ATROVENT [Concomitant]
  7. SEROVENT (SALMETEROL XINAFOATE) [Concomitant]
  8. LASIX [Concomitant]

REACTIONS (8)
  - ABDOMINAL PAIN [None]
  - ABDOMINAL PAIN UPPER [None]
  - ARTHRALGIA [None]
  - MYALGIA [None]
  - NECK MASS [None]
  - TENDON DISORDER [None]
  - TENDON RUPTURE [None]
  - WEIGHT DECREASED [None]
